FAERS Safety Report 15392215 (Version 1)
Quarter: 2018Q3

REPORT INFORMATION
  Report Type: Spontaneous
  Country: IN (occurrence: IN)
  Receive Date: 20180917
  Receipt Date: 20180917
  Transmission Date: 20181010
  Serious: Yes (Other)
  Sender: FDA-Public Use
  Company Number: IN-LANNETT COMPANY, INC.-IN-2018LAN001101

PATIENT

DRUGS (6)
  1. RIFAMPIN. [Suspect]
     Active Substance: RIFAMPIN
     Indication: INFECTIVE UVEITIS
     Dosage: UNK
     Route: 065
  2. PYRAZINAMIDE. [Suspect]
     Active Substance: PYRAZINAMIDE
     Indication: INFECTIVE UVEITIS
     Dosage: UNK
     Route: 065
  3. PREDNISOLONE. [Concomitant]
     Active Substance: PREDNISOLONE
     Dosage: {10 MG, QD (TAPERED)
     Route: 048
  4. ISONIAZID. [Suspect]
     Active Substance: ISONIAZID
     Indication: INFECTIVE UVEITIS
     Dosage: UNK
     Route: 065
  5. ETHAMBUTOL [Suspect]
     Active Substance: ETHAMBUTOL HYDROCHLORIDE
     Indication: INFECTIVE UVEITIS
     Dosage: UNK
     Route: 065
  6. PREDNISOLONE. [Concomitant]
     Active Substance: PREDNISOLONE
     Indication: ANTIINFLAMMATORY THERAPY
     Dosage: 1 MG/KG, UNK
     Route: 048

REACTIONS (1)
  - Paradoxical drug reaction [Recovered/Resolved]
